FAERS Safety Report 6601521-3 (Version None)
Quarter: 2010Q1

REPORT INFORMATION
  Report Type: 
  Country: None (occurrence: None)
  Receive Date: 20100225
  Receipt Date: 20100222
  Transmission Date: 20100710
  Serious: Yes (Death, Hospitalization, Other)
  Sender: FDA-Public Use
  Company Number: US-ELI_LILLY_AND_COMPANY-US201001006054

PATIENT
  Sex: Male
  Weight: 69.841 kg

DRUGS (4)
  1. ALIMTA [Suspect]
     Indication: NON-SMALL CELL LUNG CANCER
     Dosage: UNK, UNKNOWN
     Route: 065
     Dates: start: 20090724, end: 20091130
  2. VITAMIN B-12 [Concomitant]
  3. FOLIC ACID [Concomitant]
  4. DEXAMETHASONE [Concomitant]

REACTIONS (5)
  - ACUTE RESPIRATORY FAILURE [None]
  - GASTROINTESTINAL HAEMORRHAGE [None]
  - HYPERTENSION [None]
  - PNEUMONIA [None]
  - UNRESPONSIVE TO STIMULI [None]
